FAERS Safety Report 4929354-4 (Version None)
Quarter: 2006Q1

REPORT INFORMATION
  Report Type: 
  Country: None (occurrence: None)
  Receive Date: 20060224
  Receipt Date: 20060214
  Transmission Date: 20060701
  Serious: Yes (Other)
  Sender: FDA-Public Use
  Company Number: HQWYE826916FEB06

PATIENT
  Age: 60 Year
  Sex: Male

DRUGS (4)
  1. RAPAMUNE [Suspect]
     Indication: PROPHYLAXIS AGAINST TRANSPLANT REJECTION
     Dosage: 5 MG 1X PER 1 DAY/STARTED ON POST TRANSPLANT DAY 4
  2. PREDNISONE TAB [Concomitant]
  3. MYCOPHENOLATE MOFETIL (MYCOPHENOLATE MOFETIL) [Concomitant]
  4. SIMULECT [Concomitant]

REACTIONS (3)
  - RENAL TUBULAR NECROSIS [None]
  - THROMBOTIC MICROANGIOPATHY [None]
  - TUBULOINTERSTITIAL NEPHRITIS [None]
